FAERS Safety Report 24819376 (Version 1)
Quarter: 2025Q1

REPORT INFORMATION
  Report Type: Spontaneous
  Country: US (occurrence: US)
  Receive Date: 20250108
  Receipt Date: 20250108
  Transmission Date: 20250409
  Serious: Yes (Other)
  Sender: PFIZER
  Company Number: US-Novartis Pharma AG-NVSC2024US125570

PATIENT
  Age: 62 Year
  Sex: Female

DRUGS (15)
  1. FENTANYL CITRATE [Suspect]
     Active Substance: FENTANYL CITRATE
  2. METOPROLOL TARTRATE [Suspect]
     Active Substance: METOPROLOL TARTRATE
  3. PANTOPRAZOLE [Suspect]
     Active Substance: PANTOPRAZOLE
  4. BENZYL BENZOATE [Suspect]
     Active Substance: BENZYL BENZOATE
  5. PILOCARPINE [Suspect]
     Active Substance: PILOCARPINE
  6. VALSARTAN [Suspect]
     Active Substance: VALSARTAN
  7. PRAVASTATIN [Suspect]
     Active Substance: PRAVASTATIN
  8. OLANZAPINE [Suspect]
     Active Substance: OLANZAPINE
  9. VENLAFAXINE [Suspect]
     Active Substance: VENLAFAXINE HYDROCHLORIDE
  10. OXYCODONE [Suspect]
     Active Substance: OXYCODONE
  11. KLONOPIN [Suspect]
     Active Substance: CLONAZEPAM
  12. ULTRAM [Suspect]
     Active Substance: TRAMADOL HYDROCHLORIDE
  13. ACETAMINOPHEN\HYDROCODONE\PROMETHAZINE [Suspect]
     Active Substance: ACETAMINOPHEN\HYDROCODONE\PROMETHAZINE
  14. LYRICA [Suspect]
     Active Substance: PREGABALIN
  15. XANAX [Suspect]
     Active Substance: ALPRAZOLAM

REACTIONS (9)
  - Rheumatoid arthritis [Unknown]
  - Systemic lupus erythematosus [Unknown]
  - Sjogren^s syndrome [Unknown]
  - Posture abnormal [Unknown]
  - Fatigue [Unknown]
  - Pain [Unknown]
  - Anxiety [Unknown]
  - Head titubation [Unknown]
  - Memory impairment [Unknown]
